FAERS Safety Report 16201077 (Version 1)
Quarter: 2019Q2

REPORT INFORMATION
  Report Type: Spontaneous
  Country: US (occurrence: US)
  Receive Date: 20190416
  Receipt Date: 20190416
  Transmission Date: 20190711
  Serious: No
  Sender: FDA-Public Use
  Company Number: US-BION-007245

PATIENT
  Age: 72 Year
  Sex: Female

DRUGS (5)
  1. UBIQUINOL [Concomitant]
     Active Substance: UBIQUINOL
     Dosage: STRENGTH: 100 MG
  2. VALSARTAN. [Concomitant]
     Active Substance: VALSARTAN
  3. ALEVE [Suspect]
     Active Substance: NAPROXEN SODIUM
     Indication: PAIN
     Route: 048
     Dates: start: 20180524, end: 20180601
  4. METFORMIN [Concomitant]
     Active Substance: METFORMIN HYDROCHLORIDE
  5. ST JOSEPH ASPIRIN [Concomitant]
     Dosage: STRENGTH: 81 MG

REACTIONS (5)
  - Expired product administered [Not Recovered/Not Resolved]
  - Incorrect product administration duration [Not Recovered/Not Resolved]
  - Incorrect dose administered [Not Recovered/Not Resolved]
  - Product prescribing error [Not Recovered/Not Resolved]
  - Therapeutic product effect incomplete [Not Recovered/Not Resolved]

NARRATIVE: CASE EVENT DATE: 20180524
